FAERS Safety Report 5283130-4 (Version None)
Quarter: 2007Q1

REPORT INFORMATION
  Report Type: 
  Country: None (occurrence: None)
  Receive Date: 20061226
  Receipt Date: 20061105
  Transmission Date: 20070707
  Serious: No
  Sender: FDA-Public Use
  Company Number: 2006PV024599

PATIENT
  Age: 47 Year
  Sex: Female

DRUGS (3)
  1. SYMLIN [Suspect]
     Indication: DIABETES MELLITUS INSULIN-DEPENDENT
     Dosage: 90 MCG;TID;SC
     Route: 058
     Dates: start: 20061103
  2. LANTUS [Concomitant]
  3. NOVOLOG [Concomitant]

REACTIONS (3)
  - MEDICATION ERROR [None]
  - NAUSEA [None]
  - VOMITING [None]
